FAERS Safety Report 8857160 (Version 1)
Quarter: 2012Q4

REPORT INFORMATION
  Report Type: 
  Country: US (occurrence: US)
  Receive Date: 20121023
  Receipt Date: 20121023
  Transmission Date: 20130627
  Serious: No
  Sender: FDA-Public Use
  Company Number: US-AMGEN-USASP2012055146

PATIENT
  Age: 54 Year
  Sex: Female
  Weight: 122.45 kg

DRUGS (7)
  1. ENBREL [Suspect]
     Indication: PRODUCT USED FOR UNKNOWN INDICATION
     Dosage: 50 mg, qwk
     Route: 058
  2. LOMOTIL [Concomitant]
     Dosage: 2.5 mg, UNK
  3. TYLENOL COLD                       /00384601/ [Concomitant]
     Dosage: UNK
  4. METHOTREXATE /00113802/ [Concomitant]
     Dosage: 2.5 mg, UNK
  5. PROCHLORPERAZINE [Concomitant]
     Dosage: 5 mg, UNK
  6. VITAMIN D /00107901/ [Concomitant]
     Dosage: 50000 unit, UNK
  7. FLEXERIL                           /00428402/ [Concomitant]
     Dosage: 5 mg, UNK

REACTIONS (1)
  - Injection site pain [Unknown]
